FAERS Safety Report 9593959 (Version 1)
Quarter: 2013Q3

REPORT INFORMATION
  Report Type: Spontaneous
  Country: US (occurrence: None)
  Receive Date: 20130930
  Receipt Date: 20130930
  Transmission Date: 20140515
  Serious: No
  Sender: FDA-Public Use
  Company Number: 1000047911

PATIENT
  Age: 45 Year
  Sex: Female

DRUGS (3)
  1. LINZESS [Suspect]
     Indication: CONSTIPATION
     Dosage: 145 MCG, 1 IN1 D
     Route: 048
     Dates: start: 201307, end: 20130813
  2. PROBIOTIC [Concomitant]
  3. MVI [Concomitant]

REACTIONS (5)
  - Diarrhoea [None]
  - Nausea [None]
  - Rectal discharge [None]
  - Abdominal discomfort [None]
  - Vomiting [None]
